FAERS Safety Report 4619091-8 (Version None)
Quarter: 2005Q1

REPORT INFORMATION
  Report Type: 
  Country: None (occurrence: None)
  Receive Date: 20050318
  Receipt Date: 20050318
  Transmission Date: 20050727
  Serious: Yes (Hospitalization)
  Sender: FDA-Public Use
  Company Number: None

PATIENT
  Sex: Male
  Weight: 86.1834 kg

DRUGS (4)
  1. COUMADIN [Suspect]
     Indication: MYOCARDIAL INFARCTION
     Dosage: 7.5 MG PO QD [PRIOR TO ADMISSION]
     Route: 048
  2. COREG [Concomitant]
  3. ALTACE [Concomitant]
  4. FLAGYL [Concomitant]

REACTIONS (1)
  - DIARRHOEA [None]
